FAERS Safety Report 5750408-7 (Version None)
Quarter: 2008Q2

REPORT INFORMATION
  Report Type: 
  Country: None (occurrence: None)
  Receive Date: 20080523
  Receipt Date: 20080523
  Transmission Date: 20081010
  Serious: Yes (Death)
  Sender: FDA-Public Use
  Company Number: None

PATIENT
  Age: 41 Year
  Sex: Male
  Weight: 88 kg

DRUGS (3)
  1. CEFEPIME [Suspect]
     Indication: INFECTION
     Dosage: 500 MG DAILY IV
     Route: 042
     Dates: start: 20080414, end: 20080422
  2. CEFEPIME [Suspect]
     Indication: PYREXIA
     Dosage: 500 MG DAILY IV
     Route: 042
     Dates: start: 20080414, end: 20080422
  3. IMIPENEM [Suspect]
     Dosage: 250 MG Q12  IV
     Route: 042
     Dates: start: 20080422, end: 20080428

REACTIONS (1)
  - TOXIC EPIDERMAL NECROLYSIS [None]
